FAERS Safety Report 24756264 (Version 1)
Quarter: 2024Q4

REPORT INFORMATION
  Report Type: Spontaneous
  Country: US (occurrence: US)
  Receive Date: 20241220
  Receipt Date: 20241220
  Transmission Date: 20250115
  Serious: Yes (Other)
  Sender: ENDO
  Company Number: US-ENDO USA, INC.-2024-050926

PATIENT
  Sex: Female

DRUGS (4)
  1. CALCITONIN SALMON [Suspect]
     Active Substance: CALCITONIN SALMON
     Indication: Bone disorder
     Dosage: UNK UNKNOWN, UNKNOWN
     Route: 065
  2. CALCITONIN SALMON [Suspect]
     Active Substance: CALCITONIN SALMON
     Indication: Bone disorder
     Dosage: UNK UNKNOWN, UNKNOWN
     Route: 065
  3. CALCITONIN SALMON [Suspect]
     Active Substance: CALCITONIN SALMON
     Dosage: UNK UNKNOWN, UNKNOWN
     Route: 065
  4. CALCITONIN SALMON [Suspect]
     Active Substance: CALCITONIN SALMON
     Dosage: UNK UNKNOWN, UNKNOWN
     Route: 065

REACTIONS (2)
  - Hip surgery [Unknown]
  - Product odour abnormal [Not Recovered/Not Resolved]
